FAERS Safety Report 9134700 (Version 1)
Quarter: 2013Q1

REPORT INFORMATION
  Report Type: Spontaneous
  Country: US (occurrence: US)
  Receive Date: 20130304
  Receipt Date: 20130304
  Transmission Date: 20140127
  Serious: No
  Sender: FDA-Public Use
  Company Number: US-ENDO PHARMACEUTICALS INC.-VALS20120025

PATIENT
  Age: 63 None
  Sex: Male
  Weight: 99.88 kg

DRUGS (1)
  1. VALSTAR [Suspect]
     Indication: BLADDER CANCER
     Dosage: 800 MG
     Route: 043
     Dates: start: 20120430

REACTIONS (2)
  - Haemangioma [Not Recovered/Not Resolved]
  - Rash [Not Recovered/Not Resolved]
